FAERS Safety Report 18821441 (Version 2)
Quarter: 2021Q3

REPORT INFORMATION
  Report Type: Spontaneous
  Country: FR (occurrence: FR)
  Receive Date: 20210201
  Receipt Date: 20210924
  Transmission Date: 20211014
  Serious: Yes (Hospitalization)
  Sender: FDA-Public Use
  Company Number: FR-PFIZER INC-2021065882

PATIENT
  Age: 73 Year
  Sex: Female
  Weight: 56 kg

DRUGS (8)
  1. CARBOPLATIN. [Suspect]
     Active Substance: CARBOPLATIN
     Indication: OVARIAN CANCER
     Dosage: 60 MG, CYCLIC
     Route: 042
     Dates: start: 20201214, end: 20201214
  2. PACLITAXEL. [Concomitant]
     Active Substance: PACLITAXEL
     Indication: OVARIAN CANCER
     Dosage: 276 MG, CYCLIC
     Route: 042
     Dates: start: 20201214, end: 20201214
  3. ZOPHREN [ONDANSETRON HYDROCHLORIDE] [Concomitant]
     Active Substance: ONDANSETRON
     Indication: CHEMOTHERAPY SIDE EFFECT PROPHYLAXIS
     Dosage: 8 MG
     Route: 048
     Dates: start: 20201214, end: 20201214
  4. ATEZOLIZUMAB. [Concomitant]
     Active Substance: ATEZOLIZUMAB
     Indication: OVARIAN CANCER
     Dosage: 500 MG, CYCLIC
     Route: 042
     Dates: start: 20201214, end: 20201214
  5. EMLA [Concomitant]
     Active Substance: LIDOCAINE\PRILOCAINE
     Indication: CHEMOTHERAPY SIDE EFFECT PROPHYLAXIS
     Dosage: 1 DF, CYCLIC
     Route: 003
     Dates: start: 20201214, end: 20201214
  6. AVASTIN [Concomitant]
     Active Substance: BEVACIZUMAB
     Indication: OVARIAN CANCER
     Dosage: 837 MG, CYCLIC
     Route: 042
     Dates: start: 20201214, end: 20201214
  7. EMEND [Concomitant]
     Active Substance: APREPITANT
     Indication: CHEMOTHERAPY SIDE EFFECT PROPHYLAXIS
     Dosage: 125 MG, CYCLIC
     Route: 048
     Dates: start: 20201214, end: 20201214
  8. PREDNISOLONE. [Concomitant]
     Active Substance: PREDNISOLONE
     Indication: CHEMOTHERAPY SIDE EFFECT PROPHYLAXIS
     Dosage: 20 MG, CYCLIC
     Route: 048
     Dates: start: 20201214, end: 20201214

REACTIONS (3)
  - Rash maculo-papular [Recovering/Resolving]
  - Erythema [Recovering/Resolving]
  - Pruritus [Recovering/Resolving]

NARRATIVE: CASE EVENT DATE: 20201215
